FAERS Safety Report 7235004-7 (Version None)
Quarter: 2011Q1

REPORT INFORMATION
  Report Type: 
  Country: None (occurrence: None)
  Receive Date: 20110120
  Receipt Date: 20110111
  Transmission Date: 20110831
  Serious: Yes (Other)
  Sender: FDA-Public Use
  Company Number: CA-JNJFOC-20110103249

PATIENT
  Sex: Female
  Weight: 83 kg

DRUGS (5)
  1. CELEXA [Concomitant]
  2. TYLENOL W/ CODEINE NO. 3 [Concomitant]
  3. REMICADE [Suspect]
     Indication: HIDRADENITIS
     Route: 042
  4. PANTOLOC [Concomitant]
  5. DETROL [Concomitant]

REACTIONS (2)
  - GASTRIC BYPASS [None]
  - CYSTITIS [None]
